FAERS Safety Report 9640273 (Version 2)
Quarter: 2013Q4

REPORT INFORMATION
  Report Type: Spontaneous
  Country: US (occurrence: US)
  Receive Date: 20131023
  Receipt Date: 20131115
  Transmission Date: 20140711
  Serious: Yes (Other)
  Sender: FDA-Public Use
  Company Number: US-BAYER-2013-127817

PATIENT
  Age: 31 Year
  Sex: Female
  Weight: 61.22 kg

DRUGS (4)
  1. YASMIN [Suspect]
  2. LEVOTHYROXINE [Concomitant]
     Dosage: 125 MCG
     Dates: start: 20080621
  3. SERTRALINE [Concomitant]
     Dosage: 10 MG, UNK
     Dates: start: 20080711
  4. ZYLET [Concomitant]
     Dosage: UNK
     Dates: start: 20080903

REACTIONS (1)
  - Thrombophlebitis superficial [None]
